FAERS Safety Report 4594611-0 (Version None)
Quarter: 2005Q1

REPORT INFORMATION
  Report Type: 
  Country: None (occurrence: None)
  Receive Date: 20050301
  Receipt Date: 20041102
  Transmission Date: 20050727
  Serious: No
  Sender: FDA-Public Use
  Company Number: US-BRISTOL-MYERS SQUIBB COMPANY-12753943

PATIENT
  Age: 65 Year
  Sex: Male
  Weight: 93 kg

DRUGS (9)
  1. ERBITUX [Suspect]
     Indication: COLORECTAL CANCER METASTATIC
     Dosage: LOADING DOSE 19-JUL-04 (700 MG), ALSO REC'D ON 28-OCT-04 (400 MG)
     Route: 042
     Dates: start: 20040101, end: 29940101
  2. AVASTIN [Concomitant]
     Dosage: REC'D 08/04 + 9/04 (TWICE THREE WEEKS APART)+ 10/04
     Dates: start: 20040101, end: 20040101
  3. CAMPTOSAR [Concomitant]
     Dosage: REC'D 10/03 THRU 2/04, RESTARTED 08/04 TO 09/04, LAST DOSE 12-OCT-04
  4. ANZEMET [Concomitant]
     Indication: PREMEDICATION
     Dates: start: 20040101, end: 20040101
  5. TYLENOL (CAPLET) [Concomitant]
     Indication: PREMEDICATION
     Dates: start: 20040101, end: 20040101
  6. BENADRYL [Concomitant]
     Indication: PREMEDICATION
     Dates: start: 20040101, end: 20040101
  7. PEPCID [Concomitant]
     Indication: PREMEDICATION
     Dates: start: 20040101, end: 20040101
  8. SOLU-MEDROL [Concomitant]
     Indication: PREMEDICATION
     Dates: start: 20040101, end: 20040101
  9. AMARYL [Concomitant]

REACTIONS (1)
  - RASH PRURITIC [None]
